FAERS Safety Report 7229089-1 (Version None)
Quarter: 2011Q1

REPORT INFORMATION
  Report Type: 
  Country: None (occurrence: None)
  Receive Date: 20110117
  Receipt Date: 20110111
  Transmission Date: 20110831
  Serious: No
  Sender: FDA-Public Use
  Company Number: US-ROXANE LABORATORIES, INC.-2011-RO-00055RO

PATIENT
  Age: 58 Year
  Sex: Female

DRUGS (1)
  1. AZATHIOPRINE [Suspect]
     Indication: CROHN'S DISEASE
     Dosage: 125 MG

REACTIONS (3)
  - DRUG INEFFECTIVE [None]
  - URINE COLOUR ABNORMAL [None]
  - CROHN'S DISEASE [None]
